FAERS Safety Report 12770150 (Version 2)
Quarter: 2016Q4

REPORT INFORMATION
  Report Type: Spontaneous
  Country: US (occurrence: US)
  Receive Date: 20160922
  Receipt Date: 20161026
  Transmission Date: 20170207
  Serious: No
  Sender: FDA-Public Use
  Company Number: US-PFIZER INC-2016420818

PATIENT
  Age: 79 Year
  Sex: Female
  Weight: 69 kg

DRUGS (2)
  1. PREMPRO [Concomitant]
     Active Substance: ESTROGENS, CONJUGATED\MEDROXYPROGESTERONE ACETATE
     Dosage: UNK
  2. LIPITOR [Suspect]
     Active Substance: ATORVASTATIN CALCIUM
     Indication: BLOOD CHOLESTEROL ABNORMAL
     Dosage: 10 MG, 1X/DAY, BEFORE BED
     Route: 048
     Dates: start: 20160603

REACTIONS (3)
  - Product solubility abnormal [Unknown]
  - Nausea [Unknown]
  - Poor quality drug administered [Unknown]
